FAERS Safety Report 5615737-6 (Version None)
Quarter: 2008Q1

REPORT INFORMATION
  Report Type: 
  Country: None (occurrence: None)
  Receive Date: 20080201
  Receipt Date: 20080124
  Transmission Date: 20080703
  Serious: Yes (Death, Other)
  Sender: FDA-Public Use
  Company Number: 2008US000355

PATIENT
  Age: 52 Year
  Sex: Male

DRUGS (4)
  1. PROGRAF [Suspect]
     Indication: RENAL TRANSPLANT
  2. MYCOPHENOLATE MOFETIL [Suspect]
     Indication: RENAL TRANSPLANT
  3. RAPAMUNE [Suspect]
     Indication: RENAL TRANSPLANT
  4. THYMOGLOBULIN [Suspect]
     Indication: RENAL TRANSPLANT

REACTIONS (13)
  - ABDOMINAL PAIN LOWER [None]
  - ASCITES [None]
  - CARDIOMEGALY [None]
  - COMPLICATIONS OF TRANSPLANTED KIDNEY [None]
  - HAEMATURIA [None]
  - HAEMODIALYSIS [None]
  - MITRAL VALVE CALCIFICATION [None]
  - PERICARDIAL EFFUSION [None]
  - PERITONEAL FLUID ANALYSIS ABNORMAL [None]
  - PLEURAL EFFUSION [None]
  - PNEUMONIA ASPIRATION [None]
  - PORTAL HYPERTENSION [None]
  - TRANSPLANT REJECTION [None]
